FAERS Safety Report 5269264-9 (Version None)
Quarter: 2007Q1

REPORT INFORMATION
  Report Type: 
  Country: None (occurrence: None)
  Receive Date: 20070319
  Receipt Date: 20070307
  Transmission Date: 20070707
  Serious: Yes (Hospitalization, Disabling)
  Sender: FDA-Public Use
  Company Number: JP-PFIZER INC-2007011365

PATIENT
  Sex: Male
  Weight: 61 kg

DRUGS (2)
  1. EPIRUBICIN HYDROCHLORIDE [Suspect]
     Indication: BLADDER CANCER
     Dosage: DAILY DOSE:30MG
     Route: 013
     Dates: start: 20050819, end: 20050819
  2. RANDA [Concomitant]

REACTIONS (3)
  - INJECTION SITE ERYTHEMA [None]
  - MUSCLE NECROSIS [None]
  - SCIATIC NERVE INJURY [None]
